FAERS Safety Report 11109486 (Version 1)
Quarter: 2015Q2

REPORT INFORMATION
  Report Type: Spontaneous
  Country: US (occurrence: None)
  Receive Date: 20150511
  Receipt Date: 20150511
  Transmission Date: 20150821
  Serious: Yes (Other)
  Sender: FDA-Public Use
  Company Number: 2015AKN00259

PATIENT
  Age: 56 Year
  Sex: Male
  Weight: 79.4 kg

DRUGS (2)
  1. HYDROCHLOROTHIAZIDE AND LISINOPRIL [Concomitant]
     Active Substance: HYDROCHLOROTHIAZIDE\LISINOPRIL
  2. MYORISAN [Suspect]
     Active Substance: ISOTRETINOIN
     Indication: ACNE CYSTIC
     Dosage: 40 MG, 1X/DAY, ORAL
     Route: 048
     Dates: start: 20150331, end: 20150406

REACTIONS (3)
  - Depression [None]
  - Crying [None]
  - Mood swings [None]

NARRATIVE: CASE EVENT DATE: 201504
